FAERS Safety Report 9357292 (Version 3)
Quarter: 2014Q2

REPORT INFORMATION
  Report Type: Spontaneous
  Country: US (occurrence: US)
  Receive Date: 20130620
  Receipt Date: 20140617
  Transmission Date: 20141212
  Serious: Yes (Other)
  Sender: FDA-Public Use
  Company Number: US-BAYER-2013-073414

PATIENT
  Age: 26 Year
  Sex: Female
  Weight: 70.3 kg

DRUGS (1)
  1. MIRENA [Suspect]
     Indication: CONTRACEPTION
     Dosage: 20 MCG/24HR, CONT
     Route: 015
     Dates: start: 20070720, end: 20110404

REACTIONS (9)
  - Embedded device [None]
  - Pain [None]
  - Injury [None]
  - Procedural pain [None]
  - Uterine scar [None]
  - Abortion spontaneous [None]
  - Depression [Not Recovered/Not Resolved]
  - Anxiety [Not Recovered/Not Resolved]
  - Off label use [None]
